FAERS Safety Report 9262916 (Version 1)
Quarter: 2013Q2

REPORT INFORMATION
  Report Type: Spontaneous
  Country: GB (occurrence: None)
  Receive Date: 20130426
  Receipt Date: 20130426
  Transmission Date: 20140414
  Serious: Yes (Other)
  Sender: FDA-Public Use
  Company Number: 2013-1669

PATIENT
  Age: 54 Year
  Sex: Female

DRUGS (1)
  1. DYSPORT (BOTULINUM TOXIN TYPE A) (BOTULINUM TOXIN TYPE A) [Suspect]
     Indication: MUSCLE SPASTICITY
     Dosage: (1 IN 1 CYCLE)
     Dates: start: 201005, end: 201005

REACTIONS (1)
  - Hepatitis chronic active [None]
